FAERS Safety Report 5100349-3 (Version None)
Quarter: 2006Q3

REPORT INFORMATION
  Report Type: 
  Country: None (occurrence: None)
  Receive Date: 20060731
  Receipt Date: 20060531
  Transmission Date: 20061208
  Serious: No
  Sender: FDA-Public Use
  Company Number: 2006PV014739

PATIENT
  Age: 65 Year
  Sex: Female
  Weight: 122.4712 kg

DRUGS (7)
  1. BYETTA [Suspect]
     Indication: DIABETES MELLITUS NON-INSULIN-DEPENDENT
     Dosage: 5 MCG; BID; SC
     Route: 058
     Dates: start: 20060530
  2. GLUCOPHAGE [Concomitant]
  3. ACTOS [Concomitant]
  4. AMARYL [Concomitant]
  5. FORTAMET [Concomitant]
  6. ACTOS [Concomitant]
  7. AMARYL [Concomitant]

REACTIONS (6)
  - ABDOMINAL PAIN UPPER [None]
  - AGITATION [None]
  - DECREASED APPETITE [None]
  - FEELING JITTERY [None]
  - FLATULENCE [None]
  - INSOMNIA [None]
